FAERS Safety Report 20819244 (Version 5)
Quarter: 2022Q4

REPORT INFORMATION
  Report Type: Spontaneous
  Country: FR (occurrence: FR)
  Receive Date: 20220512
  Receipt Date: 20221213
  Transmission Date: 20230113
  Serious: Yes (Death, Other)
  Sender: FDA-Public Use
  Company Number: FR-GLAXOSMITHKLINE-FR2022EME076638

PATIENT

DRUGS (16)
  1. LAMICTAL [Suspect]
     Active Substance: LAMOTRIGINE
     Indication: Product used for unknown indication
     Dosage: UNK
     Dates: start: 2016
  2. LAMICTAL [Suspect]
     Active Substance: LAMOTRIGINE
     Dosage: 25 MG
     Dates: start: 20160613, end: 20160626
  3. LAMICTAL [Suspect]
     Active Substance: LAMOTRIGINE
     Dosage: 50 MG
     Dates: start: 20160627, end: 20160710
  4. LAMICTAL [Suspect]
     Active Substance: LAMOTRIGINE
     Dosage: 75 MG
     Dates: start: 20160711, end: 20160724
  5. LAMICTAL [Suspect]
     Active Substance: LAMOTRIGINE
     Dosage: 100 MG
     Dates: start: 20160711, end: 20160807
  6. LAMICTAL [Suspect]
     Active Substance: LAMOTRIGINE
     Dosage: 125 MG
     Dates: start: 20160808, end: 20160821
  7. LAMICTAL [Suspect]
     Active Substance: LAMOTRIGINE
     Dosage: 150 MG
     Dates: start: 20160822, end: 20160901
  8. TRILEPTAL [Suspect]
     Active Substance: OXCARBAZEPINE
     Indication: Product used for unknown indication
     Dosage: 600 MG, QD, IN EVEING
     Dates: start: 2011, end: 2016
  9. TRILEPTAL [Suspect]
     Active Substance: OXCARBAZEPINE
     Dosage: 900 MG, QD
  10. TRILEPTAL [Suspect]
     Active Substance: OXCARBAZEPINE
     Dosage: 900 MG
     Dates: start: 20160613, end: 20160626
  11. TRILEPTAL [Suspect]
     Active Substance: OXCARBAZEPINE
     Dosage: 750 MG
     Dates: start: 20160627, end: 20160710
  12. TRILEPTAL [Suspect]
     Active Substance: OXCARBAZEPINE
     Dosage: 600 MG
     Dates: start: 20160711, end: 20160724
  13. TRILEPTAL [Suspect]
     Active Substance: OXCARBAZEPINE
     Dosage: 450 MG
     Dates: start: 20160725, end: 20160807
  14. TRILEPTAL [Suspect]
     Active Substance: OXCARBAZEPINE
     Dosage: 300 MG
     Dates: start: 20160808, end: 20160821
  15. TRILEPTAL [Suspect]
     Active Substance: OXCARBAZEPINE
     Dosage: 300 MG
     Dates: start: 20160822, end: 20160901
  16. ETHINYL ESTRADIOL\LEVONORGESTREL [Concomitant]
     Active Substance: ETHINYL ESTRADIOL\LEVONORGESTREL
     Indication: Menstruation normal
     Dosage: UNK

REACTIONS (8)
  - Drug therapeutic incompatibility [Fatal]
  - Epilepsy [Fatal]
  - Asphyxia [Fatal]
  - Pancreatic neuroendocrine tumour [Fatal]
  - Tonsillitis [Fatal]
  - Laryngeal oedema [Fatal]
  - Seizure [Fatal]
  - Lennox-Gastaut syndrome [Fatal]
